FAERS Safety Report 9624408 (Version 2)
Quarter: 2013Q4

REPORT INFORMATION
  Report Type: Spontaneous
  Country: FR (occurrence: FR)
  Receive Date: 20131015
  Receipt Date: 20131023
  Transmission Date: 20140711
  Serious: Yes (Hospitalization)
  Sender: FDA-Public Use
  Company Number: FR-GLAXOSMITHKLINE-B0929352A

PATIENT
  Age: 75 Year
  Sex: Female

DRUGS (7)
  1. DEROXAT [Suspect]
     Indication: PRODUCT USED FOR UNKNOWN INDICATION
     Dosage: 10MG PER DAY
     Route: 048
     Dates: start: 201209, end: 20130604
  2. TRANXENE [Suspect]
     Indication: PRODUCT USED FOR UNKNOWN INDICATION
     Dosage: 5MG TWICE PER DAY
     Route: 048
     Dates: end: 20130604
  3. ATARAX [Suspect]
     Indication: PRODUCT USED FOR UNKNOWN INDICATION
     Dosage: 50MG PER DAY
     Route: 048
     Dates: end: 20130604
  4. COUMADINE [Concomitant]
     Dosage: 3MG PER DAY
     Route: 048
  5. CRESTOR [Concomitant]
     Dosage: 10MG PER DAY
     Route: 048
  6. RENAGEL [Concomitant]
     Dosage: 2400MG TWICE PER DAY
     Route: 048
  7. INSULIN [Concomitant]
     Route: 058

REACTIONS (7)
  - Delirium [Recovered/Resolved]
  - Disorientation [Recovered/Resolved]
  - Hallucination, visual [Recovered/Resolved]
  - Aggression [Recovered/Resolved]
  - Abnormal behaviour [Recovered/Resolved]
  - Food aversion [Unknown]
  - Refusal of treatment by patient [Unknown]
